FAERS Safety Report 9863292 (Version 1)
Quarter: 2014Q1

REPORT INFORMATION
  Report Type: Spontaneous
  Country: US (occurrence: US)
  Receive Date: 20140203
  Receipt Date: 20140203
  Transmission Date: 20141002
  Serious: No
  Sender: FDA-Public Use
  Company Number: US-PFIZER INC-2014028941

PATIENT
  Sex: Female

DRUGS (1)
  1. PREMARIN [Suspect]
     Indication: OESTROGEN THERAPY
     Dosage: 0.3 MG, 1X/DAY
     Route: 048
     Dates: start: 1985

REACTIONS (2)
  - Incorrect product storage [Unknown]
  - Sleep disorder [Recovered/Resolved]
